FAERS Safety Report 11323664 (Version 1)
Quarter: 2015Q3

REPORT INFORMATION
  Report Type: Spontaneous
  Country: BG (occurrence: BG)
  Receive Date: 20150730
  Receipt Date: 20150730
  Transmission Date: 20151125
  Serious: Yes (Hospitalization)
  Sender: FDA-Public Use
  Company Number: BG-ASTRAZENECA-2015SE71963

PATIENT
  Age: 69 Year
  Sex: Male

DRUGS (1)
  1. SYMBICORT [Suspect]
     Active Substance: BUDESONIDE\FORMOTEROL FUMARATE DIHYDRATE
     Indication: CHRONIC OBSTRUCTIVE PULMONARY DISEASE
     Dosage: 160 MCG/4.5 MCG, 1 INHALATION TWO TIMES A DAY
     Route: 055

REACTIONS (6)
  - Pulmonary calcification [Unknown]
  - Pyrexia [Unknown]
  - Productive cough [Unknown]
  - Pulmonary fibrosis [Unknown]
  - Bronchiectasis [Unknown]
  - Dyspnoea exertional [Unknown]
